FAERS Safety Report 4977595-2 (Version None)
Quarter: 2006Q2

REPORT INFORMATION
  Report Type: 
  Country: None (occurrence: None)
  Receive Date: 20060414
  Receipt Date: 20060404
  Transmission Date: 20061013
  Serious: Yes (Life-Threatening)
  Sender: FDA-Public Use
  Company Number: HQWYE699207FEB06

PATIENT
  Age: 76 Year
  Sex: Male

DRUGS (5)
  1. MYLOTARG [Suspect]
     Indication: ACUTE MYELOID LEUKAEMIA RECURRENT
     Dosage: 9 MG/M^2 1X PER 1 DAY INTRAVENOUS DRIP
     Route: 041
     Dates: start: 20051129, end: 20051129
  2. SULFAMETHOXAZOLE + TRIMETHOPRIM [Concomitant]
  3. CIPROFLOXACIN HYDROCHLORIDE [Concomitant]
  4. FLUCONAZOLE [Concomitant]
  5. ROXATIDINE ACETATE HCL [Concomitant]

REACTIONS (6)
  - ANAEMIA [None]
  - C-REACTIVE PROTEIN INCREASED [None]
  - FEBRILE NEUTROPENIA [None]
  - NEUTROPHIL COUNT DECREASED [None]
  - PLATELET COUNT DECREASED [None]
  - WHITE BLOOD CELL COUNT DECREASED [None]
